FAERS Safety Report 6910130-8 (Version None)
Quarter: 2010Q3

REPORT INFORMATION
  Report Type: 
  Country: None (occurrence: None)
  Receive Date: 20100806
  Receipt Date: 20100726
  Transmission Date: 20110219
  Serious: Yes (Hospitalization)
  Sender: FDA-Public Use
  Company Number: US-RB-013122-10

PATIENT
  Age: 70 Year
  Sex: Female

DRUGS (4)
  1. MUCINEX [Suspect]
     Route: 048
     Dates: start: 20090101
  2. ZANTAC [Concomitant]
  3. AMBIEN [Concomitant]
  4. ROBITUSSIN [Concomitant]

REACTIONS (6)
  - DECREASED APPETITE [None]
  - DIARRHOEA [None]
  - ELECTROLYTE IMBALANCE [None]
  - INCORRECT DRUG ADMINISTRATION DURATION [None]
  - INSOMNIA [None]
  - VOMITING [None]
